FAERS Safety Report 8250313-0 (Version None)
Quarter: 2012Q1

REPORT INFORMATION
  Report Type: 
  Country: None (occurrence: None)
  Receive Date: 20120328
  Receipt Date: 20120313
  Transmission Date: 20120608
  Serious: Yes (Other)
  Sender: FDA-Public Use
  Company Number: FK201200794

PATIENT
  Age: 39 Year
  Sex: Male

DRUGS (6)
  1. RANITIDINE [Suspect]
  2. PROPOFOL [Suspect]
     Indication: GENERAL ANAESTHESIA
     Dosage: INTRAVENOUS (NOT OTHERWISE SPECIFIED)
     Route: 042
  3. ROCURONIUM BROMIDE [Suspect]
     Indication: GENERAL ANAESTHESIA
     Dosage: INTRAVENOUS (NOT OTHERWISE SPECIFIED)
     Route: 042
  4. REMIFENTANIL (MANUFACTURER UNKNOWN) (REMIFENTANIL) (REMIFENTANIL) [Suspect]
     Indication: GENERAL ANAESTHESIA
     Dosage: INTRAVENOUS (NOT OTHERWISE SPECIFIED)
     Route: 042
  5. MIDAZOLAM [Suspect]
  6. METOCLOPRAMIDE [Suspect]

REACTIONS (2)
  - RESPIRATORY FAILURE [None]
  - MYOTONIA [None]
